FAERS Safety Report 25227317 (Version 2)
Quarter: 2025Q3

REPORT INFORMATION
  Report Type: Spontaneous
  Country: US (occurrence: US)
  Receive Date: 20250422
  Receipt Date: 20250810
  Transmission Date: 20251021
  Serious: No
  Sender: ALEXION PHARMACEUTICALS
  Company Number: US-AstraZeneca-CH-00852416A

PATIENT
  Sex: Female

DRUGS (2)
  1. BREZTRI [Suspect]
     Active Substance: BUDESONIDE\FORMOTEROL\GLYCOPYRROLATE
     Route: 065
  2. ALBUTEROL [Concomitant]
     Active Substance: ALBUTEROL
     Route: 065

REACTIONS (9)
  - Secretion discharge [Unknown]
  - Tremor [Unknown]
  - Device delivery system issue [Unknown]
  - Therapy cessation [Unknown]
  - Therapy change [Unknown]
  - Total lung capacity decreased [Unknown]
  - Coronavirus test [Unknown]
  - Gait disturbance [Unknown]
  - Breath sounds normal [Unknown]
